FAERS Safety Report 20729597 (Version 7)
Quarter: 2022Q3

REPORT INFORMATION
  Report Type: Report from Study
  Country: GB (occurrence: GB)
  Receive Date: 20220420
  Receipt Date: 20220830
  Transmission Date: 20221027
  Serious: Yes (Hospitalization, Other)
  Sender: FDA-Public Use
  Company Number: GB-CELLTRION HEALTHCARE HUNGARY KFT-2020GB035202

PATIENT
  Age: 46 Year
  Sex: Female

DRUGS (184)
  1. TRASTUZUMAB [Suspect]
     Active Substance: TRASTUZUMAB
     Indication: Breast cancer metastatic
     Dosage: 600 MG, EVERY 3 WEEKS START DATE 20-APR-2015
     Route: 042
  2. TRASTUZUMAB [Suspect]
     Active Substance: TRASTUZUMAB
     Indication: Breast cancer
     Dosage: UNK, (DOSE FORM: 230)
     Route: 065
  3. TRASTUZUMAB [Suspect]
     Active Substance: TRASTUZUMAB
     Indication: HER2 positive breast cancer
     Dosage: 600 MG, TIW/EVERY 3 WEEKS (DOSE FORM: 230) START DATE 20-APR-2015
     Route: 042
  4. TRASTUZUMAB [Suspect]
     Active Substance: TRASTUZUMAB
     Dosage: 600 MILLIGRAM, Q3W, (DOSE FORM: 293)
     Route: 042
  5. TRASTUZUMAB [Suspect]
     Active Substance: TRASTUZUMAB
     Dosage: 600 MILLIGRAM, Q3W, (DOSE FORM: 230) START DATE 20-APR-2015
     Route: 042
  6. TRASTUZUMAB [Suspect]
     Active Substance: TRASTUZUMAB
     Dosage: 840 MILLIGRAM, Q3W, (DOSE FORM: 293) START DATE 20-APR-2015
     Route: 042
  7. TRASTUZUMAB [Suspect]
     Active Substance: TRASTUZUMAB
     Dosage: 1500 MILLIGRAM, Q3W, (500 MG 3/WEEKS START DATE 27-DEC-2017
     Route: 042
  8. TRASTUZUMAB [Suspect]
     Active Substance: TRASTUZUMAB
     Dosage: 500 MILLIGRAM, Q3W,  (DOSE FORM: 293) START DATE 27-DEC-2017
     Route: 042
  9. TRASTUZUMAB [Suspect]
     Active Substance: TRASTUZUMAB
     Dosage: 500 MG, Q3WK/EVERY 3 WEEKS (DOSE FORM: 230) START DATE 27-DEC-2017
     Route: 042
  10. TRASTUZUMAB [Suspect]
     Active Substance: TRASTUZUMAB
     Dosage: 840 MILLIGRAM, Q3W
     Route: 042
  11. DOCETAXEL [Suspect]
     Active Substance: DOCETAXEL
     Indication: Breast cancer
     Dosage: 150 MG, Q2WK/EVERY 2 WEEKS START DATE 21-APR-2015
     Route: 042
     Dates: end: 20150421
  12. DOCETAXEL [Suspect]
     Active Substance: DOCETAXEL
     Indication: Breast cancer female
     Dosage: 150 MG EVERY 3 WEEKS; 150 MG, TIW START DATE 21-APR-2015
     Route: 042
     Dates: end: 20150421
  13. DOCETAXEL [Suspect]
     Active Substance: DOCETAXEL
     Indication: Breast cancer metastatic
     Dosage: 150 MG, TIW (EVERY 3 WEEKS) START DATE 21-APR-2015
     Route: 042
     Dates: end: 20150421
  14. DOCETAXEL [Suspect]
     Active Substance: DOCETAXEL
     Indication: HER2 positive breast cancer
     Dosage: 150 MG, TIW (EVERY 3 WEEKS) START DATE 21-APR-2015
     Route: 042
     Dates: end: 20150421
  15. DOCETAXEL [Suspect]
     Active Substance: DOCETAXEL
     Dosage: 150 MG, Q2WK/EVERY 2 WEEKS (DOSE FORM: 16, 17) START DATE 21-APR-2015
     Route: 042
     Dates: end: 20150421
  16. DOCETAXEL [Suspect]
     Active Substance: DOCETAXEL
     Dosage: 150 MG EVERY 3 WEEKS START DATE 21-APR-2015
     Route: 042
     Dates: end: 20150421
  17. DOCETAXEL [Suspect]
     Active Substance: DOCETAXEL
     Dosage: 120 MG, EVERY 3 WEEKS (DOSE FORM: 16) START DATE 12-MAY-2015
     Route: 042
     Dates: end: 20150512
  18. DOCETAXEL [Suspect]
     Active Substance: DOCETAXEL
     Dosage: 120 MILLIGRAM, Q3W, START DATE 12-MAY-2015
     Route: 042
     Dates: end: 20150804
  19. DOCETAXEL [Suspect]
     Active Substance: DOCETAXEL
     Dosage: 120 MILLIGRAM, Q3W (120 MG, TIW (EVERY 3 WEEKS)) START DATE 12-MAY-2015
     Route: 042
  20. DOCETAXEL [Suspect]
     Active Substance: DOCETAXEL
     Dosage: 120 MG, EVERY 3 WEEKS (DOSE FORM: 16) START DATE 04-AUG-2015
     Route: 042
  21. DOCETAXEL [Suspect]
     Active Substance: DOCETAXEL
     Dosage: 360 MILLIGRAM, QW CUMULATIVE DOSE: 125.71429 MG START DATE 12-MAY-2015
     Route: 042
     Dates: end: 20150804
  22. DOCETAXEL [Suspect]
     Active Substance: DOCETAXEL
     Dosage: 300 MILLIGRAM, QW (START 21-APR-2015)
     Route: 042
  23. DOCETAXEL [Suspect]
     Active Substance: DOCETAXEL
     Dosage: 240 MG, QW (START 12-MAY-2015 AND STOP 04-AUG-2015))
     Route: 042
  24. PERTUZUMAB [Suspect]
     Active Substance: PERTUZUMAB
     Indication: Breast cancer
     Dosage: 840 MILLIGRAM, Q3W START DATE 20-APR-2015
     Route: 042
  25. PERTUZUMAB [Suspect]
     Active Substance: PERTUZUMAB
     Indication: Breast cancer metastatic
     Dosage: 420 MG, EVERY 3 WEEKS START DATE 20-APR-2015
     Route: 042
  26. PERTUZUMAB [Suspect]
     Active Substance: PERTUZUMAB
     Indication: HER2 positive breast cancer
     Dosage: 1260 MILLIGRAM, QW, (840 MG, 3/WEEKS) START DATE 20-APR-2015
     Route: 042
  27. PERTUZUMAB [Suspect]
     Active Substance: PERTUZUMAB
     Dosage: 420 MG, EVERY WEEKS (DOSE FORM:231) START DATE 20-APR-2015
     Route: 042
  28. PERTUZUMAB [Suspect]
     Active Substance: PERTUZUMAB
     Dosage: 420 MG, Q3WK/EVERY 3 WEEKS (DOSE FORM: 231) START DATE 20-APR-2015
     Route: 042
  29. PERTUZUMAB [Suspect]
     Active Substance: PERTUZUMAB
     Dosage: 1680 MILLIGRAM, QW START DATE 20-APR-2015
     Route: 042
  30. PERTUZUMAB [Suspect]
     Active Substance: PERTUZUMAB
     Dosage: 960 MILLIGRAM
     Route: 042
  31. TAXOTERE [Suspect]
     Active Substance: DOCETAXEL
     Indication: HER2 positive breast cancer
     Dosage: 240 MILLIGRAM, QW START DATE 12-MAY-2015
     Route: 042
     Dates: end: 20150804
  32. TAXOTERE [Suspect]
     Active Substance: DOCETAXEL
     Dosage: 300 MILLIGRAM, QW START DATE 21-APR-2015
     Route: 042
     Dates: end: 20150421
  33. TAXOTERE [Suspect]
     Active Substance: DOCETAXEL
     Dosage: 150 MILLIGRAM, Q3W START DATE 21-APR-2015
     Route: 042
     Dates: end: 20150421
  34. TAXOTERE [Suspect]
     Active Substance: DOCETAXEL
     Dosage: 120 MILLIGRAM, Q3W START DATE 12-MAY-2015
     Route: 042
     Dates: end: 20150804
  35. LOPERAMIDE [Concomitant]
     Active Substance: LOPERAMIDE
     Indication: Diarrhoea
     Dosage: 2 MG EVERY 1 DAY AS NEEDED  START DATE 16-MAY-2015
     Route: 048
     Dates: end: 20150516
  36. TAMIFLU [Concomitant]
     Active Substance: OSELTAMIVIR PHOSPHATE
     Indication: Influenza
     Dosage: 150 MILLIGRAM, QD START DATE 19-FEB-2018
     Route: 048
     Dates: end: 20180226
  37. TAMIFLU [Concomitant]
     Active Substance: OSELTAMIVIR PHOSPHATE
     Dosage: 75 MILLIGRAM, QD, START DATE 19-FEB-2018
     Route: 048
     Dates: end: 20180226
  38. TAMIFLU [Concomitant]
     Active Substance: OSELTAMIVIR PHOSPHATE
     Dosage: 75 MG START DATE 26-FEB-2018
     Route: 048
  39. TAMIFLU [Concomitant]
     Active Substance: OSELTAMIVIR PHOSPHATE
     Dosage: 150 MILLIGRAM, QD START DATE 26-FEB-2018
     Route: 048
  40. PFIZER-BIONTECH COVID-19 VACCINE [Concomitant]
     Active Substance: TOZINAMERAN
     Dosage: UNK
     Route: 065
  41. PFIZER-BIONTECH COVID-19 VACCINE [Concomitant]
     Active Substance: TOZINAMERAN
     Dosage: 30 MICROGRAM, QD, EVERY 1 DAY (OTHER) START DATE 04-FEB-2021
     Route: 030
     Dates: end: 20210204
  42. PFIZER-BIONTECH COVID-19 VACCINE [Concomitant]
     Active Substance: TOZINAMERAN
     Dosage: 30 MICROGRAM, QD, EVERY 1 DAY (OTHER) START DATE 22-APR-2021
     Route: 030
     Dates: end: 20210422
  43. CALCEOS [Concomitant]
     Active Substance: CALCIUM CARBONATE\CHOLECALCIFEROL
     Indication: Product used for unknown indication
     Dosage: 1 TABLET, QD START DATE 13-JUL-2015
     Route: 048
  44. CALCEOS [Concomitant]
     Active Substance: CALCIUM CARBONATE\CHOLECALCIFEROL
     Dosage: UNK, 1 QD/EVERY 1 DAY START DATE 13-JUL-2015
     Route: 048
     Dates: end: 20150824
  45. CALCEOS [Concomitant]
     Active Substance: CALCIUM CARBONATE\CHOLECALCIFEROL
     Dosage: 1 DOSAGE FORM, QD START DATE 13-JUL-2015
     Route: 048
     Dates: end: 20150824
  46. METHYL SALICYLATE [Concomitant]
     Active Substance: METHYL SALICYLATE
     Indication: Product used for unknown indication
     Dosage: UNK, PRN (AS NECESSARY) START DATE 29-DEC-2016
     Route: 048
  47. METHYL SALICYLATE [Concomitant]
     Active Substance: METHYL SALICYLATE
     Dosage: UNK, PRN (AS NECESSARY) START DATE 29-DEC-2016
     Route: 065
  48. CALCIUM CARBONATE\CHOLECALCIFEROL [Concomitant]
     Active Substance: CALCIUM CARBONATE\CHOLECALCIFEROL
     Dosage: 1 TABLET, BID START DATE 23-JUN-2015
     Route: 048
     Dates: end: 20150625
  49. CALCIUM CARBONATE\CHOLECALCIFEROL [Concomitant]
     Active Substance: CALCIUM CARBONATE\CHOLECALCIFEROL
     Dosage: UNK, BID START DATE 23-JUN-2015
     Route: 048
     Dates: end: 20150625
  50. CALCIUM CARBONATE\CHOLECALCIFEROL [Concomitant]
     Active Substance: CALCIUM CARBONATE\CHOLECALCIFEROL
     Dosage: 1 EVERY 1 DAY (1 TABLET), QD START DATE 23-JUN-2015
     Route: 048
     Dates: end: 20150625
  51. CALCIUM CARBONATE\CHOLECALCIFEROL [Concomitant]
     Active Substance: CALCIUM CARBONATE\CHOLECALCIFEROL
     Dosage: EVERY 12 HR, BID START DATE 23-JUN-2015
     Route: 048
     Dates: end: 20150625
  52. CALCIUM CARBONATE\CHOLECALCIFEROL [Concomitant]
     Active Substance: CALCIUM CARBONATE\CHOLECALCIFEROL
     Dosage: 2 DOSAGE FORM, QD START DATE 23-JUN-2015
     Route: 048
     Dates: end: 20150625
  53. CALCIUM CARBONATE\CHOLECALCIFEROL [Concomitant]
     Active Substance: CALCIUM CARBONATE\CHOLECALCIFEROL
     Dosage: 0.5 MILLIGRAM, QD
     Route: 048
  54. CALCIUM CARBONATE\CHOLECALCIFEROL [Concomitant]
     Active Substance: CALCIUM CARBONATE\CHOLECALCIFEROL
     Dosage: 1 DOSAGE FORM, 12HR, BID START DATE 23-JUN-2015
     Route: 048
     Dates: end: 20150625
  55. LANOLIN\LIGHT MINERAL OIL\PARAFFIN [Concomitant]
     Active Substance: LANOLIN\LIGHT MINERAL OIL\PARAFFIN
     Indication: Pruritus
     Dosage: UNK, PRN (1 TABLESPOON); AS NECESSARY (DOSE: 17) 15-MAY-2015
     Route: 061
  56. LANOLIN\LIGHT MINERAL OIL\PARAFFIN [Concomitant]
     Active Substance: LANOLIN\LIGHT MINERAL OIL\PARAFFIN
     Dosage: 1 TABLESPOON START DATE 15-MAY-2015
     Route: 061
  57. LANOLIN\LIGHT MINERAL OIL\PARAFFIN [Concomitant]
     Active Substance: LANOLIN\LIGHT MINERAL OIL\PARAFFIN
     Dosage: UNK, (AS NECESSARY) START DATE 15-MAY-2015
     Route: 061
  58. VASELINE PURE [Concomitant]
     Active Substance: PETROLATUM
     Indication: Epistaxis
     Dosage: UNK START DATE 12-NOV-2018
     Route: 061
  59. VASELINE PURE [Concomitant]
     Active Substance: PETROLATUM
     Dosage: UNK, AS NECESSARY START DATE 16-AUG-2016
     Route: 061
  60. VASELINE PURE [Concomitant]
     Active Substance: PETROLATUM
     Dosage: 1 TBSP (TABLESPOON START DATE 16-AUG-2016
     Route: 061
  61. VASELINE PURE [Concomitant]
     Active Substance: PETROLATUM
     Dosage: UNK
     Route: 065
  62. ACYCLOVIR [Concomitant]
     Active Substance: ACYCLOVIR
     Indication: Genital herpes
     Dosage: 400 MG, QID (DOSE FORM: 245), START DATE 11-FEB-2017
     Route: 048
     Dates: end: 20170218
  63. ACYCLOVIR [Concomitant]
     Active Substance: ACYCLOVIR
     Dosage: 800 MILLIGRAM, QD, START DATE 11-FEB-2017
     Route: 048
     Dates: end: 20170218
  64. ACYCLOVIR [Concomitant]
     Active Substance: ACYCLOVIR
     Dosage: 200 MILLIGRAM, QD START DATE 11-FEB-2017
     Route: 048
     Dates: end: 20170218
  65. ACYCLOVIR [Concomitant]
     Active Substance: ACYCLOVIR
     Dosage: 200 MILLIGRAM START DATE 11-FEB-2017
     Route: 048
     Dates: end: 20170218
  66. ACYCLOVIR [Concomitant]
     Active Substance: ACYCLOVIR
     Dosage: 200 MILLIGRAM, QID START DATE 11-FEB-2017
     Route: 048
     Dates: end: 20170218
  67. ACYCLOVIR [Concomitant]
     Active Substance: ACYCLOVIR
     Dosage: 200 MILLIGRAM START DATE: 11-FEB-2017
     Route: 065
     Dates: end: 20170218
  68. Aqueous [Concomitant]
     Indication: Eczema
     Dosage: UNK START DATE 12-NOV-2018
     Route: 061
  69. Aqueous [Concomitant]
     Dosage: UNK, PRN (1 AS NEEDED) START DATE 12-NOV-2018
     Route: 061
  70. ENOXAPARIN [Concomitant]
     Active Substance: ENOXAPARIN
     Indication: Influenza
     Dosage: 40 MILLIGRAM START DATE 19-FEB-2018
     Route: 058
     Dates: end: 20180220
  71. ENOXAPARIN [Concomitant]
     Active Substance: ENOXAPARIN
     Dosage: 40 MILLIGRAM, QD 19-FEB-2018
     Route: 058
     Dates: end: 20180220
  72. ENOXAPARIN [Concomitant]
     Active Substance: ENOXAPARIN
     Dosage: 40 MILLIGRAM, QD START DATE 20-FEB-2018
     Route: 058
  73. ENOXAPARIN SODIUM [Concomitant]
     Active Substance: ENOXAPARIN SODIUM
     Indication: Product used for unknown indication
     Dosage: 40 MG, QD. EVERY1 DAY START DATE 19-FEB-2018
     Route: 058
     Dates: end: 20180220
  74. MEGACE [Concomitant]
     Active Substance: MEGESTROL ACETATE
     Indication: Menopausal symptoms
     Dosage: 80 MG START DATE 01-JUN-2015
     Route: 048
  75. MEGACE [Concomitant]
     Active Substance: MEGESTROL ACETATE
     Dosage: 160 MILLIGRAM, (80 MG BID)  START DATE 01-JUN-2015
     Route: 048
  76. MEGACE [Concomitant]
     Active Substance: MEGESTROL ACETATE
     Dosage: 80 MILLIGRAM, QD
     Route: 048
  77. MEGACE [Concomitant]
     Active Substance: MEGESTROL ACETATE
     Dosage: 80 MILLIGRAM, QOD  START DATE 01-JUN-2015
     Route: 048
  78. AMOXICILLIN\CLAVULANATE POTASSIUM [Concomitant]
     Active Substance: AMOXICILLIN\CLAVULANATE POTASSIUM
     Indication: Influenza
     Dosage: 625 MILLIGRAM, QD START DATE 20-FEB-2018
     Route: 048
     Dates: end: 20180225
  79. AMOXICILLIN\CLAVULANATE POTASSIUM [Concomitant]
     Active Substance: AMOXICILLIN\CLAVULANATE POTASSIUM
     Dosage: 625 MILLIGRAM, Q3W START DATE 25-FEB-2018
     Route: 048
  80. AMOXICILLIN\CLAVULANATE POTASSIUM [Concomitant]
     Active Substance: AMOXICILLIN\CLAVULANATE POTASSIUM
     Dosage: UNK, QD START DATE 20-FEB-2018
     Route: 048
     Dates: end: 20180225
  81. AMOXICILLIN\CLAVULANATE POTASSIUM [Concomitant]
     Active Substance: AMOXICILLIN\CLAVULANATE POTASSIUM
     Dosage: 1875 MILLIGRAM, QD START DATE 20-FEB-2018
     Route: 048
     Dates: end: 20180225
  82. AMOXICILLIN\CLAVULANATE POTASSIUM [Concomitant]
     Active Substance: AMOXICILLIN\CLAVULANATE POTASSIUM
     Dosage: UNK START DATE 20-FEB-2018
     Route: 065
     Dates: end: 20180225
  83. AMOXICILLIN\CLAVULANATE POTASSIUM [Concomitant]
     Active Substance: AMOXICILLIN\CLAVULANATE POTASSIUM
     Dosage: UNK, TID START DATE 20-FEB-2018
     Route: 048
     Dates: end: 20180225
  84. AMOXICILLIN\CLAVULANATE POTASSIUM [Concomitant]
     Active Substance: AMOXICILLIN\CLAVULANATE POTASSIUM
     Dosage: 625 MILLIGRAM, QD,START DATE 20-FEB-2018
     Route: 048
     Dates: end: 20180225
  85. AMOXICILLIN\CLAVULANATE POTASSIUM [Concomitant]
     Active Substance: AMOXICILLIN\CLAVULANATE POTASSIUM
     Dosage: UNK, 3, EVERY 1 DAY START DATE 20-FEB-2018
     Route: 048
     Dates: end: 20180225
  86. AMOXICILLIN\CLAVULANATE POTASSIUM [Concomitant]
     Active Substance: AMOXICILLIN\CLAVULANATE POTASSIUM
     Dosage: 625 MILLIGRAM, Q8H/TID START DATE 20-FEB-2018
     Route: 048
     Dates: end: 20180220
  87. AMOXICILLIN [Concomitant]
     Active Substance: AMOXICILLIN
     Indication: Lower respiratory tract infection
     Dosage: 625 MILLIGRAM, QD START DATE 20-FEB-2018
     Route: 048
     Dates: end: 20180225
  88. AMOXICILLIN [Concomitant]
     Active Substance: AMOXICILLIN
     Indication: Influenza
     Dosage: UNK
     Route: 065
  89. AMOXICILLIN [Concomitant]
     Active Substance: AMOXICILLIN
     Dosage: 500 MILLIGRAM, QD, START DATE 27-DEC-2017
     Route: 048
     Dates: end: 20180102
  90. ZOPICLONE [Concomitant]
     Active Substance: ZOPICLONE
     Indication: Sleep disorder
     Dosage: 3.75 MILLIGRAM, PRN START DATE 19-OCT-2015
     Route: 048
  91. ZOPICLONE [Concomitant]
     Active Substance: ZOPICLONE
     Dosage: 3.75 MILLIGRAM, HS START DATE 19-OCT-2015
     Route: 048
  92. ZOPICLONE [Concomitant]
     Active Substance: ZOPICLONE
     Dosage: 3.75 MILLIGRAM, QD, HS START DATE 19-OCT-2015
     Route: 048
  93. XGEVA [Concomitant]
     Active Substance: DENOSUMAB
     Dosage: 240 MILLIGRAM, QD, (120 MG, BID) START DATE 15-JAN-2018
     Route: 048
  94. XGEVA [Concomitant]
     Active Substance: DENOSUMAB
     Dosage: 240 MILLIGRAM, QD, (120 MG, BID) START DATE 15-JAN-2018
     Route: 048
  95. XGEVA [Concomitant]
     Active Substance: DENOSUMAB
     Dosage: 120 MILLIGRAM, Q12HR/BID
     Route: 048
  96. XGEVA [Concomitant]
     Active Substance: DENOSUMAB
     Dosage: 120 MILLIGRAM, Q12HR/BID  START DATE 15-JAN-2018
     Route: 048
  97. XGEVA [Concomitant]
     Active Substance: DENOSUMAB
     Dosage: 240 MILLIGRAM, QD  START DATE 15-JAN-2018
     Route: 065
  98. XGEVA [Concomitant]
     Active Substance: DENOSUMAB
     Indication: Product used for unknown indication
     Dosage: 120 MILLIGRAM, MONTHLY START DATE  23-JUN-2015
     Route: 058
     Dates: end: 20170508
  99. XGEVA [Concomitant]
     Active Substance: DENOSUMAB
     Dosage: 120 MILLIGRAM, MONTHLY START DATE  23-JUN-2015
     Route: 058
  100. NAPROXEN [Concomitant]
     Active Substance: NAPROXEN
     Indication: Arthralgia
     Dosage: 500 MILLIGRAM, BID//Q12HR START DATE 18-FEB-2018
     Route: 048
     Dates: end: 20180220
  101. NAPROXEN [Concomitant]
     Active Substance: NAPROXEN
     Indication: Influenza
     Dosage: 500 MILLIGRAM START DATE 18-FEB-2018
     Route: 048
     Dates: end: 20180220
  102. NAPROXEN [Concomitant]
     Active Substance: NAPROXEN
     Dosage: 1000 MILLIGRAM, QD, (500 MG, BID) START DATE 18-FEB-2018
     Route: 048
     Dates: end: 20180220
  103. NAPROXEN [Concomitant]
     Active Substance: NAPROXEN
     Dosage: 250 MILLIGRAM START DATE 2015
     Route: 048
     Dates: end: 20160314
  104. NAPROXEN [Concomitant]
     Active Substance: NAPROXEN
     Dosage: UNK START DATE 2015
     Route: 048
     Dates: end: 20160314
  105. ACETAMINOPHEN [Concomitant]
     Active Substance: ACETAMINOPHEN
     Indication: Influenza
     Dosage: 4 GRAM, QID START DATE 27-APR-2015
     Route: 048
  106. ACETAMINOPHEN [Concomitant]
     Active Substance: ACETAMINOPHEN
     Indication: Arthralgia
     Dosage: 4 GRAM, QD START DATE 18-FEB-2018
     Route: 048
     Dates: end: 20180220
  107. ACETAMINOPHEN [Concomitant]
     Active Substance: ACETAMINOPHEN
     Dosage: 1 GRAM, QID START DATE 18-FEB-2018
     Route: 048
     Dates: end: 20180220
  108. ACETAMINOPHEN [Concomitant]
     Active Substance: ACETAMINOPHEN
     Dosage: 1 GRAM, QID START DATE 27-APR-2015
     Route: 048
     Dates: end: 20150505
  109. ACETAMINOPHEN [Concomitant]
     Active Substance: ACETAMINOPHEN
     Dosage: 1 GRAM, QID START DATE 20-FEB-2018
     Route: 048
  110. ACETAMINOPHEN [Concomitant]
     Active Substance: ACETAMINOPHEN
     Dosage: 1 GRAM START DATE 20-APR-2015
     Route: 048
     Dates: end: 20180217
  111. ACETAMINOPHEN [Concomitant]
     Active Substance: ACETAMINOPHEN
     Dosage: 1 GRAM, QID START DATE 27-APR-2015
     Route: 048
  112. CODEINE PHOSPHATE [Concomitant]
     Active Substance: CODEINE PHOSPHATE
     Indication: Arthralgia
     Dosage: 30 MILLIGRAM, PRN START DATE 16-AUG-2016
     Route: 048
  113. OMEPRAZOLE [Concomitant]
     Active Substance: OMEPRAZOLE
     Indication: Gastritis
     Dosage: 220 MILLIGRAM, QD START DATE 22-JUN-2015
     Route: 048
     Dates: end: 20150713
  114. OMEPRAZOLE [Concomitant]
     Active Substance: OMEPRAZOLE
     Indication: Gastrooesophageal reflux disease
     Dosage: 20 MILLIGRAM, QD START DATE 22-JUN-2015
     Route: 048
     Dates: end: 20150713
  115. OMEPRAZOLE [Concomitant]
     Active Substance: OMEPRAZOLE
     Dosage: 20 MILLIGRAM, QD START DATE 22-JUN-2015
     Route: 048
  116. OMEPRAZOLE [Concomitant]
     Active Substance: OMEPRAZOLE
     Dosage: 20 MILLIGRAM, QD START DATE 13-JUL-2015
     Route: 048
  117. OMEPRAZOLE [Concomitant]
     Active Substance: OMEPRAZOLE
     Dosage: 20 MILLIGRAM
     Route: 048
  118. IBUPROFEN [Concomitant]
     Active Substance: IBUPROFEN
     Indication: Spinal pain
     Dosage: 400 MILLIGRAM START DATE 29-DEC-2016
     Route: 048
  119. IBUPROFEN [Concomitant]
     Active Substance: IBUPROFEN
     Dosage: UNK, PRN START DATE 29-DEC-2016
     Route: 048
  120. POLYETHYLENE GLYCOL 3350\POTASSIUM CHLORIDE\SODIUM BICARBONATE\SODIUM [Concomitant]
     Active Substance: POLYETHYLENE GLYCOL 3350\POTASSIUM CHLORIDE\SODIUM BICARBONATE\SODIUM CHLORIDE
     Indication: Influenza
     Dosage: 1 SACHET, BID START DATE 19-FEB-2018
     Route: 048
     Dates: end: 20180220
  121. POLYETHYLENE GLYCOL 3350\POTASSIUM CHLORIDE\SODIUM BICARBONATE\SODIUM [Concomitant]
     Active Substance: POLYETHYLENE GLYCOL 3350\POTASSIUM CHLORIDE\SODIUM BICARBONATE\SODIUM CHLORIDE
     Dosage: UNK UNK, BID, (SOLUTION) START DATE 19-FEB-2018
     Route: 048
     Dates: end: 20180220
  122. POLYETHYLENE GLYCOL 3350\POTASSIUM CHLORIDE\SODIUM BICARBONATE\SODIUM [Concomitant]
     Active Substance: POLYETHYLENE GLYCOL 3350\POTASSIUM CHLORIDE\SODIUM BICARBONATE\SODIUM CHLORIDE
     Dosage: UNK START DATE 19-FEB-2018
     Route: 048
     Dates: end: 20180220
  123. PIPERACILLIN SODIUM\TAZOBACTAM SODIUM [Concomitant]
     Active Substance: PIPERACILLIN SODIUM\TAZOBACTAM SODIUM
     Indication: Influenza
     Dosage: 4.5 GRAM, Q3W/Q8HR START DATE 18-FEB-2018
     Route: 042
     Dates: end: 20180220
  124. PIPERACILLIN SODIUM\TAZOBACTAM SODIUM [Concomitant]
     Active Substance: PIPERACILLIN SODIUM\TAZOBACTAM SODIUM
     Indication: Neutropenic sepsis
     Dosage: 4.5 GRAM, QD START DATE 18-FEB-2018
     Route: 042
     Dates: end: 20180220
  125. PIPERACILLIN SODIUM\TAZOBACTAM SODIUM [Concomitant]
     Active Substance: PIPERACILLIN SODIUM\TAZOBACTAM SODIUM
     Dosage: 13.5 GRAM, TID, (4.5 GRAM, TID) START DATE 18-FEB-2018
     Route: 042
     Dates: end: 20180220
  126. PIPERACILLIN SODIUM\TAZOBACTAM SODIUM [Concomitant]
     Active Substance: PIPERACILLIN SODIUM\TAZOBACTAM SODIUM
     Dosage: 13.5 GRAM, QD START DATE 18-FEB-2018
     Route: 042
     Dates: end: 20180220
  127. PIPERACILLIN SODIUM\TAZOBACTAM SODIUM [Concomitant]
     Active Substance: PIPERACILLIN SODIUM\TAZOBACTAM SODIUM
     Dosage: 4.5 GRAM, Q3W START DATE 20-FEB-2018
     Route: 042
  128. PIPERACILLIN SODIUM\TAZOBACTAM SODIUM [Concomitant]
     Active Substance: PIPERACILLIN SODIUM\TAZOBACTAM SODIUM
     Dosage: 4.5 GRAM, QD, (4.5 GRAM, QD (0.33 DAY) START DATE 20-FEB-2018
     Route: 042
  129. PIPERACILLIN SODIUM\TAZOBACTAM SODIUM [Concomitant]
     Active Substance: PIPERACILLIN SODIUM\TAZOBACTAM SODIUM
     Dosage: 13.5 GRAM, QD START DATE 29-APR-2015
     Route: 042
  130. PIPERACILLIN SODIUM\TAZOBACTAM SODIUM [Concomitant]
     Active Substance: PIPERACILLIN SODIUM\TAZOBACTAM SODIUM
     Dosage: 13.4 GRAM, QD,EVERY 1 DAY START DATE 29-APR-2015
     Route: 042
  131. PIPERACILLIN SODIUM\TAZOBACTAM SODIUM [Concomitant]
     Active Substance: PIPERACILLIN SODIUM\TAZOBACTAM SODIUM
     Dosage: 4.5 GRAM, EVERY 3 DAYS/Q8HR/TID START DATE 29-APR-2015
     Route: 042
  132. PIPERACILLIN SODIUM\TAZOBACTAM SODIUM [Concomitant]
     Active Substance: PIPERACILLIN SODIUM\TAZOBACTAM SODIUM
     Dosage: 13.5 GRAM, TID, (4.5 GRAM, TID)START DATE 29-APR-2015
     Route: 042
  133. PIPERACILLIN SODIUM\TAZOBACTAM SODIUM [Concomitant]
     Active Substance: PIPERACILLIN SODIUM\TAZOBACTAM SODIUM
     Dosage: 4.5 GRAM START DATE 29-APR-2015
     Route: 042
  134. DENOSUMAB [Concomitant]
     Active Substance: DENOSUMAB
     Dosage: 120 MILLIGRAM, QD START DATE 15-JAN-2018
     Route: 048
  135. DENOSUMAB [Concomitant]
     Active Substance: DENOSUMAB
     Dosage: 240 MILLIGRAM, (120 MG, BID) START DATE 15-JAN-2018
     Route: 048
  136. DENOSUMAB [Concomitant]
     Active Substance: DENOSUMAB
     Dosage: 240 MILLIGRAM, QD, START DATE 15-JAN-2018
     Route: 048
  137. DENOSUMAB [Concomitant]
     Active Substance: DENOSUMAB
     Dosage: 120 MILLIGRAM, BID
     Route: 048
  138. DENOSUMAB [Concomitant]
     Active Substance: DENOSUMAB
     Dosage: 120 MILLIGRAM, BID START DATE 15-JAN-2018
     Route: 048
  139. DENOSUMAB [Concomitant]
     Active Substance: DENOSUMAB
     Indication: Product used for unknown indication
     Dosage: 120 MG, MONTHLY, START DATE 23-JUN-2015
     Route: 058
     Dates: end: 20170508
  140. DENOSUMAB [Concomitant]
     Active Substance: DENOSUMAB
     Dosage: 120 MILLIGRAM, MONTHLY START DATE 23-JUN-2015
     Route: 058
  141. IBUPROFEN [Concomitant]
     Active Substance: IBUPROFEN
     Indication: Arthralgia
     Dosage: 400 MILLIGRAM, QD START DATE 20-APR-2015
     Route: 048
     Dates: end: 20150426
  142. IBUPROFEN [Concomitant]
     Active Substance: IBUPROFEN
     Dosage: 200 MILLIGRAM, BID/EVERY 12 HR START DATE 20-APR-2015
     Route: 048
     Dates: end: 20150426
  143. VASELINE PURE [Concomitant]
     Active Substance: PETROLATUM
     Dosage: UNK UNK, PRN START DATE 16-AUG-2016
     Route: 061
  144. VASELINE PURE [Concomitant]
     Active Substance: PETROLATUM
     Dosage: UNK START DATE 16-AUG-2016
     Route: 061
  145. SENNA [Concomitant]
     Active Substance: SENNA LEAF\SENNOSIDES\SENNOSIDES A AND B
     Indication: Influenza
     Dosage: UNK, QD- START DATE 09-FEB-2018
     Route: 048
     Dates: end: 20180220
  146. SENNA [Concomitant]
     Active Substance: SENNA LEAF\SENNOSIDES\SENNOSIDES A AND B
     Dosage: 1 SACHET, QD START DATE 19-FEB-2018
     Route: 048
     Dates: end: 20180220
  147. SENNA [Concomitant]
     Active Substance: SENNA LEAF\SENNOSIDES\SENNOSIDES A AND B
     Dosage: SOLUTION, QD START DATE 19-FEB-2018
     Route: 048
     Dates: end: 20180220
  148. SENNA [Concomitant]
     Active Substance: SENNA LEAF\SENNOSIDES\SENNOSIDES A AND B
     Dosage: 1 DOSAGE FORM, QD, (1 SACHET) START DATE 19-FEB-2018
     Route: 048
     Dates: end: 20180220
  149. SENNA [Concomitant]
     Active Substance: SENNA LEAF\SENNOSIDES\SENNOSIDES A AND B
     Dosage: UNK1 OTHER (1, EVEY 1 DAY) START DATE 19-FEB-2018
     Route: 048
     Dates: end: 20180220
  150. RANITIDINE [Concomitant]
     Active Substance: RANITIDINE
     Dosage: 300 MILLIGRAM, QD START DATE 21-APR-2015
     Route: 048
  151. RANITIDINE [Concomitant]
     Active Substance: RANITIDINE
     Dosage: 150 MILLIGRAM, QD START DATE 21-APR-2015
     Route: 048
  152. RANITIDINE [Concomitant]
     Active Substance: RANITIDINE
     Dosage: 150 MILLIGRAM, BID START DATE 21-APR-2015
     Route: 048
  153. AMOXICILLIN\CLAVULANATE POTASSIUM [Concomitant]
     Active Substance: AMOXICILLIN\CLAVULANATE POTASSIUM
     Dosage: 625 MILLIGRAM, QD  25-FEB-2018
     Route: 048
     Dates: end: 20180225
  154. AMOXICILLIN\CLAVULANATE POTASSIUM [Concomitant]
     Active Substance: AMOXICILLIN\CLAVULANATE POTASSIUM
     Dosage: 1875 MILLIGRAM, QD START DATE 25-FEB-2018
     Route: 048
  155. AMOXICILLIN\CLAVULANATE POTASSIUM [Concomitant]
     Active Substance: AMOXICILLIN\CLAVULANATE POTASSIUM
     Dosage: 625 MILLIGRAM, Q3W START DATE 25-FEB-2018
     Route: 048
  156. AVEENO [Concomitant]
     Active Substance: DIMETHICONE\HOMOSALATE\OCTINOXATE\OCTISALATE\TITANIUM DIOXIDE
     Indication: Eczema
     Dosage: UNK, (DOSE FORM: 17) START DATE 14-JAN-2019
     Route: 061
  157. HYDROCORTISONE [Concomitant]
     Active Substance: HYDROCORTISONE
     Indication: Eczema
     Dosage: 1% CREAM, 1 DROP
     Route: 065
  158. HYDROCORTISONE [Concomitant]
     Active Substance: HYDROCORTISONE
     Dosage: UNK, PRN
     Route: 061
  159. HYDROCORTISONE [Concomitant]
     Active Substance: HYDROCORTISONE
     Dosage: 1 DROP
     Route: 061
  160. HYDROCORTISONE [Concomitant]
     Active Substance: HYDROCORTISONE
     Dosage: UNK
     Route: 065
  161. HYDROCORTISONE [Concomitant]
     Active Substance: HYDROCORTISONE
     Dosage: 400 MILLIGRAM START DATE 29-DEC-2016
     Route: 048
  162. SODIUM CHLORIDE [Concomitant]
     Active Substance: SODIUM CHLORIDE
     Indication: Ovarian cyst
     Dosage: 1000 MILLILITER, PRN, (0.9%, AS NEEDED) START DATE 25-JAN-2016
     Route: 042
     Dates: end: 20160125
  163. SODIUM CHLORIDE [Concomitant]
     Active Substance: SODIUM CHLORIDE
     Dosage: 1000 MILLILITER, PRN (0.9%, AS NEEDED) START DATE 25-JAN-2016
     Route: 042
     Dates: end: 20160125
  164. SODIUM CHLORIDE [Concomitant]
     Active Substance: SODIUM CHLORIDE
     Dosage: 1000 ML, AS NECESSARY START DATE 25-JAN-2016
     Route: 042
     Dates: end: 20160125
  165. CODEINE [Concomitant]
     Active Substance: CODEINE
     Indication: Arthralgia
     Dosage: 30 MILLIGRAM, PRN START DATE 21-DEC-2015
     Route: 048
     Dates: end: 20160425
  166. CODEINE [Concomitant]
     Active Substance: CODEINE
     Dosage: 30 MILLIGRAM START DATE 21-DEC-2015
     Route: 048
     Dates: end: 20160425
  167. CODEINE [Concomitant]
     Active Substance: CODEINE
     Dosage: UNK UNK, PRN START DATE 21-DEC-2015
     Route: 048
     Dates: end: 20160425
  168. CODEINE [Concomitant]
     Active Substance: CODEINE
     Dosage: UNK START DATE 21-DEC-2015
     Route: 048
     Dates: end: 20160425
  169. CODEINE [Concomitant]
     Active Substance: CODEINE
     Dosage: UNK
     Route: 048
  170. ALTHAEA OFFICINALIS EXTRACT [Concomitant]
     Indication: Eczema
     Dosage: UNK START DATE 12-NOV-2018
     Route: 061
  171. ALTHAEA OFFICINALIS EXTRACT [Concomitant]
     Dosage: UNK, ADDITIONAL INFO: AQUEOUS EXTRACT FROM ALTHAEA OFFIC RAD
     Route: 065
  172. GAVISCON [Concomitant]
     Active Substance: ALUMINUM HYDROXIDE\MAGNESIUM CARBONATE
     Indication: Gastrooesophageal reflux disease
     Dosage: 20 MILLILITER, PRN START DATE MAY-2015
     Route: 048
  173. GAVISCON [Concomitant]
     Active Substance: ALUMINUM HYDROXIDE\MAGNESIUM CARBONATE
     Dosage: UNK
     Route: 065
  174. DOMPERIDONE [Concomitant]
     Active Substance: DOMPERIDONE
     Indication: Nausea
     Dosage: 10 MILLIGRAM START DATE 20-APR-2015
     Route: 048
     Dates: end: 20150427
  175. DOMPERIDONE [Concomitant]
     Active Substance: DOMPERIDONE
     Dosage: 10 MILLIGRAM, TID START DATE 20-APR-2015
     Route: 048
     Dates: end: 20150427
  176. DOMPERIDONE [Concomitant]
     Active Substance: DOMPERIDONE
     Dosage: 30 MILLIGRAM, (10 MG, TID) START DATE 20-APR-2015
     Route: 048
     Dates: end: 20150427
  177. DOMPERIDONE [Concomitant]
     Active Substance: DOMPERIDONE
     Dosage: 10 MILLIGRAM, Q3D START DATE 20-APR-2015
     Route: 048
     Dates: end: 20150427
  178. AMOXIL [Concomitant]
     Active Substance: AMOXICILLIN
     Indication: Chest pain
     Dosage: 625 MILLIGRAM, EVERY 1 DAY START DATE 20-FEB-2018
     Route: 048
     Dates: end: 20180225
  179. AMOXIL [Concomitant]
     Active Substance: AMOXICILLIN
     Dosage: 6625 MILLIGRAM, (1875 MG, QD) START DATE 25-FEB-2018
     Route: 048
  180. AMOXIL [Concomitant]
     Active Substance: AMOXICILLIN
     Dosage: UNK START DATE 27-DEC-2017
     Route: 065
     Dates: end: 20180102
  181. AMOXIL [Concomitant]
     Active Substance: AMOXICILLIN
     Dosage: 500 MILLIGRAM, QD START DATE 27-DEC-2017
     Route: 048
     Dates: end: 20180102
  182. MEGESTROL ACETATE [Concomitant]
     Active Substance: MEGESTROL ACETATE
     Indication: Menopausal symptoms
     Dosage: 80 MILLIGRAM, QD START DATE 01-JUN-2015
     Route: 048
  183. ALGINIC ACID [Concomitant]
     Active Substance: ALGINIC ACID
     Dosage: UNK, (ADDITIONAL INFO: GAVISCON)
     Route: 065
  184. MINERAL OIL [Concomitant]
     Active Substance: MINERAL OIL
     Dosage: UNK START DATE : 12-NOV-2018 00:00
     Route: 061

REACTIONS (27)
  - Gastritis [Recovered/Resolved]
  - Dry eye [Recovered/Resolved]
  - Dry skin [Not Recovered/Not Resolved]
  - Sleep disorder [Unknown]
  - Lethargy [Recovered/Resolved]
  - Gastrooesophageal reflux disease [Recovered/Resolved]
  - Glossodynia [Unknown]
  - Night sweats [Not Recovered/Not Resolved]
  - Mood swings [Recovered/Resolved]
  - Neutropenic sepsis [Recovered/Resolved]
  - Ovarian cyst [Recovered/Resolved]
  - Hypoaesthesia oral [Recovered/Resolved]
  - Decreased appetite [Recovered/Resolved]
  - Headache [Recovered/Resolved]
  - Dysgeusia [Recovered/Resolved]
  - Rash [Recovered/Resolved]
  - Nausea [Recovered/Resolved]
  - Arthralgia [Recovered/Resolved with Sequelae]
  - Abdominal pain [Recovered/Resolved]
  - Constipation [Recovered/Resolved]
  - Epistaxis [Not Recovered/Not Resolved]
  - Diarrhoea [Recovered/Resolved]
  - Eczema [Recovered/Resolved]
  - Influenza [Recovered/Resolved]
  - Pruritus [Recovered/Resolved]
  - Off label use [Unknown]
  - Intentional product misuse [Unknown]

NARRATIVE: CASE EVENT DATE: 20150420
